FAERS Safety Report 8881464 (Version 2)
Quarter: 2012Q4

REPORT INFORMATION
  Report Type: 
  Country: DE (occurrence: DE)
  Receive Date: 20121101
  Receipt Date: 20121127
  Transmission Date: 20130627
  Serious: Yes (Other)
  Sender: FDA-Public Use
  Company Number: DE-AMGEN-DEUSP2012069356

PATIENT
  Age: 63 Year
  Sex: Female

DRUGS (3)
  1. XGEVA [Suspect]
     Indication: METASTASES TO BONE
     Dosage: UNK
     Dates: start: 201204
  2. FULVESTRANT [Concomitant]
     Dosage: UNK
     Dates: end: 201207
  3. LETROZOL [Concomitant]
     Dosage: UNK
     Dates: start: 201207

REACTIONS (1)
  - Disease progression [Unknown]
